FAERS Safety Report 9183967 (Version 1)
Quarter: 2013Q1

REPORT INFORMATION
  Report Type: Spontaneous
  Country: US (occurrence: US)
  Receive Date: 20130322
  Receipt Date: 20130322
  Transmission Date: 20140127
  Serious: No
  Sender: FDA-Public Use
  Company Number: US-BRISTOL-MYERS SQUIBB COMPANY-16680357

PATIENT
  Age: 61 Year
  Sex: Male
  Weight: 77.55 kg

DRUGS (1)
  1. ERBITUX [Suspect]
     Indication: COLON CANCER METASTATIC
     Dosage: STARTED WEEKLY INFABOUT 4-6 WEEKS AGO.RECENT INF ON 11JUN12.LODING DOSE:760MGANDD8,D15480MG C2340MG
     Route: 042
     Dates: start: 20120521

REACTIONS (4)
  - Cheilitis [Recovered/Resolved]
  - Rash papular [Recovering/Resolving]
  - Personality change [Unknown]
  - Dry skin [Recovered/Resolved]
